FAERS Safety Report 6557955-9 (Version None)
Quarter: 2010Q1

REPORT INFORMATION
  Report Type: 
  Country: None (occurrence: None)
  Receive Date: 20100129
  Receipt Date: 20100122
  Transmission Date: 20100710
  Serious: Yes (Hospitalization)
  Sender: FDA-Public Use
  Company Number: CA-BAYER-201012293NA

PATIENT
  Age: 34 Year
  Sex: Female

DRUGS (2)
  1. YASMIN [Suspect]
     Indication: DRUG USE FOR UNKNOWN INDICATION
     Route: 048
  2. NASONEX [Suspect]
     Indication: COUGH
     Route: 045
     Dates: start: 20091120

REACTIONS (1)
  - PANCREATITIS ACUTE [None]
